FAERS Safety Report 8246226-0 (Version None)
Quarter: 2012Q1

REPORT INFORMATION
  Report Type: 
  Country: None (occurrence: None)
  Receive Date: 20120330
  Receipt Date: 20100505
  Transmission Date: 20120608
  Serious: No
  Sender: FDA-Public Use
  Company Number: US-MYLANLABS-2010S1006006

PATIENT
  Age: 69 Year
  Sex: Female

DRUGS (6)
  1. ATENOLOL [Concomitant]
     Indication: CARDIAC DISORDER
  2. ALBUTEROL [Concomitant]
  3. ALBUTEROL SULATE [Suspect]
     Indication: CHRONIC OBSTRUCTIVE PULMONARY DISEASE
     Dosage: PRN
     Route: 055
     Dates: start: 20080101
  4. ALBUTEROL SULATE [Suspect]
     Indication: DYSPNOEA
     Dosage: PRN
     Route: 055
     Dates: start: 20080101
  5. ZOLOFT [Concomitant]
     Indication: ANXIETY
  6. OXYGEN [Concomitant]

REACTIONS (4)
  - DYSPNOEA [None]
  - RESPIRATORY TRACT IRRITATION [None]
  - THROAT IRRITATION [None]
  - DRUG INEFFECTIVE [None]
